FAERS Safety Report 21735928 (Version 1)
Quarter: 2022Q4

REPORT INFORMATION
  Report Type: Spontaneous
  Country: US (occurrence: US)
  Receive Date: 20221215
  Receipt Date: 20221215
  Transmission Date: 20230113
  Serious: Yes (Hospitalization, Other)
  Sender: FDA-Public Use
  Company Number: US-ASSERTIO THERAPEUTICS, INC.-US-2022AST001991

PATIENT
  Age: 54 Year
  Sex: Male

DRUGS (1)
  1. METHOTREXATE [Suspect]
     Active Substance: METHOTREXATE
     Indication: Systemic scleroderma
     Dosage: WEEKLY
     Route: 048

REACTIONS (2)
  - Cardiotoxicity [Recovering/Resolving]
  - Toxicity to various agents [Unknown]
